FAERS Safety Report 10734527 (Version 1)
Quarter: 2015Q1

REPORT INFORMATION
  Report Type: Spontaneous
  Country: MX (occurrence: MX)
  Receive Date: 20150123
  Receipt Date: 20150123
  Transmission Date: 20150721
  Serious: Yes (Death)
  Sender: FDA-Public Use
  Company Number: MX-B.I. PHARMACEUTICALS,INC./RIDGEFIELD-2015-BI-03621MX

PATIENT
  Age: 24 Year
  Sex: Female

DRUGS (1)
  1. GILOTRIF [Suspect]
     Active Substance: AFATINIB
     Indication: HEAD AND NECK CANCER
     Route: 065
     Dates: start: 201409, end: 201412

REACTIONS (1)
  - Malignant neoplasm progression [Fatal]
